FAERS Safety Report 6150336-1 (Version None)
Quarter: 2009Q2

REPORT INFORMATION
  Report Type: 
  Country: None (occurrence: None)
  Receive Date: 20090408
  Receipt Date: 20090408
  Transmission Date: 20091009
  Serious: Yes (Life-Threatening, Hospitalization)
  Sender: FDA-Public Use
  Company Number: None

PATIENT
  Age: 54 Year
  Sex: Male
  Weight: 101.5 kg

DRUGS (2)
  1. WARFARIN SODIUM [Suspect]
     Indication: PULMONARY EMBOLISM
     Dosage: 4 MG EVERY DAY PO
     Route: 048
     Dates: start: 20090404, end: 20090407
  2. ENOXAPARIN SODIUM [Suspect]
     Dosage: 100 MG BID SQ
     Route: 058
     Dates: start: 20090403, end: 20090407

REACTIONS (4)
  - ANAEMIA [None]
  - HAEMORRHAGE [None]
  - RENAL FAILURE ACUTE [None]
  - UPPER GASTROINTESTINAL HAEMORRHAGE [None]
